FAERS Safety Report 6795844-5 (Version None)
Quarter: 2010Q2

REPORT INFORMATION
  Report Type: 
  Country: None (occurrence: None)
  Receive Date: 20100625
  Receipt Date: 20100618
  Transmission Date: 20101027
  Serious: Yes (Other)
  Sender: FDA-Public Use
  Company Number: A0866090A

PATIENT
  Age: 21 Year
  Sex: Female

DRUGS (4)
  1. LAMICTAL [Suspect]
     Indication: DEPRESSION
     Route: 048
  2. RISPERDAL [Concomitant]
  3. VYVANSE [Concomitant]
  4. ORTHO TRI-CYCLEN [Concomitant]

REACTIONS (1)
  - DENTAL CARIES [None]
